FAERS Safety Report 9664237 (Version 1)
Quarter: 2013Q4

REPORT INFORMATION
  Report Type: Spontaneous
  Country: US (occurrence: None)
  Receive Date: 20131030
  Receipt Date: 20131030
  Transmission Date: 20140711
  Serious: No
  Sender: FDA-Public Use
  Company Number: None

PATIENT
  Age: 28 Year
  Sex: Female
  Weight: 56.4 kg

DRUGS (1)
  1. VENOFER [Suspect]
     Indication: ANAEMIA
     Dosage: 500MG Q 2WKS  IV
     Route: 042
     Dates: start: 20131017

REACTIONS (5)
  - Arthralgia [None]
  - Local swelling [None]
  - Local swelling [None]
  - Dyspnoea [None]
  - Pain [None]
